FAERS Safety Report 6076456-8 (Version None)
Quarter: 2009Q1

REPORT INFORMATION
  Report Type: 
  Country: None (occurrence: None)
  Receive Date: 20090213
  Receipt Date: 20090209
  Transmission Date: 20090719
  Serious: Yes (Death)
  Sender: FDA-Public Use
  Company Number: FR-JNJFOC-20090201943

PATIENT
  Age: 76 Year
  Sex: Male

DRUGS (10)
  1. HALDOL [Suspect]
     Indication: ANXIETY
     Route: 048
  2. MEMANTINE HCL [Concomitant]
  3. LISINOPRIL [Concomitant]
  4. LYSINE ACETYLATE [Concomitant]
  5. TRINITRINE [Concomitant]
  6. EBIXA [Concomitant]
     Indication: DEMENTIA ALZHEIMER'S TYPE
     Route: 048
  7. LISINOPRIL ANHYDRE [Concomitant]
     Indication: HYPERTENSION
  8. KARDEGIC [Concomitant]
     Indication: ISCHAEMIC STROKE
     Route: 048
  9. NITRODERM [Concomitant]
     Route: 062
  10. ATHYMIL [Concomitant]
     Indication: DEPRESSION
     Route: 048

REACTIONS (4)
  - DEATH [None]
  - HALLUCINATION, VISUAL [None]
  - PYRAMIDAL TRACT SYNDROME [None]
  - URINARY TRACT NEOPLASM [None]
